FAERS Safety Report 17215914 (Version 1)
Quarter: 2019Q4

REPORT INFORMATION
  Report Type: Report from Study
  Country: US (occurrence: US)
  Receive Date: 20191230
  Receipt Date: 20191230
  Transmission Date: 20200122
  Serious: No
  Sender: FDA-Public Use
  Company Number: NVSC2019US050018

PATIENT
  Sex: Male

DRUGS (2)
  1. AFINITOR [Suspect]
     Active Substance: EVEROLIMUS
     Indication: PRODUCT USED FOR UNKNOWN INDICATION
     Dosage: 2.25 MG, BID
     Route: 065
     Dates: start: 20190203
  2. AFINITOR [Suspect]
     Active Substance: EVEROLIMUS
     Dosage: 2 MG, QD
     Route: 065

REACTIONS (6)
  - Oral pain [Not Recovered/Not Resolved]
  - Urinary tract infection [Recovered/Resolved]
  - Aphthous ulcer [Not Recovered/Not Resolved]
  - Swelling face [Recovered/Resolved]
  - Taste disorder [Not Recovered/Not Resolved]
  - Dry mouth [Not Recovered/Not Resolved]

NARRATIVE: CASE EVENT DATE: 20190213
